FAERS Safety Report 14316998 (Version 3)
Quarter: 2018Q2

REPORT INFORMATION
  Report Type: Report from Study
  Country: US (occurrence: US)
  Receive Date: 20171222
  Receipt Date: 20180409
  Transmission Date: 20180711
  Serious: Yes (Death, Hospitalization)
  Sender: FDA-Public Use
  Company Number: US-TAKEDA-2017TUS026205

PATIENT
  Sex: Female

DRUGS (2)
  1. PONATINIB [Suspect]
     Active Substance: PONATINIB
     Dosage: 15 MG, QD
     Route: 048
  2. PONATINIB [Suspect]
     Active Substance: PONATINIB
     Indication: ACUTE MYELOID LEUKAEMIA
     Dosage: 30 MG, QD
     Route: 048
     Dates: start: 20171025

REACTIONS (16)
  - Pruritus [Unknown]
  - Febrile neutropenia [Recovered/Resolved]
  - Chest pain [Unknown]
  - Off label use [Unknown]
  - Post procedural haemorrhage [Fatal]
  - Bronchopulmonary aspergillosis [Unknown]
  - Malaise [Unknown]
  - Abdominal pain [Unknown]
  - Thrombocytopenia [Unknown]
  - Rash [Recovered/Resolved]
  - Cough [Unknown]
  - Dry skin [Unknown]
  - Back pain [Unknown]
  - Pancytopenia [Unknown]
  - Anaemia [Unknown]
  - Dyspnoea [Unknown]
